FAERS Safety Report 18608530 (Version 1)
Quarter: 2020Q4

REPORT INFORMATION
  Report Type: Spontaneous
  Country: BR (occurrence: BR)
  Receive Date: 20201212
  Receipt Date: 20201212
  Transmission Date: 20210114
  Serious: Yes (Hospitalization)
  Sender: FDA-Public Use
  Company Number: BR-JNJFOC-20201204685

PATIENT
  Sex: Male

DRUGS (1)
  1. DALINVI [Suspect]
     Active Substance: DARATUMUMAB
     Indication: WISKOTT-ALDRICH SYNDROME
     Route: 065

REACTIONS (6)
  - Coombs direct test positive [Unknown]
  - Product use in unapproved indication [Unknown]
  - Haemorrhage [Unknown]
  - Platelet count decreased [Unknown]
  - Crossmatch incompatible [Unknown]
  - Off label use [Unknown]
